FAERS Safety Report 12229949 (Version 1)
Quarter: 2016Q1

REPORT INFORMATION
  Report Type: Spontaneous
  Country: US (occurrence: None)
  Receive Date: 20160331
  Receipt Date: 20160331
  Transmission Date: 20160526
  Serious: Yes (Hospitalization)
  Sender: FDA-Public Use
  Company Number: None

PATIENT
  Age: 63 Year
  Sex: Male
  Weight: 166.2 kg

DRUGS (2)
  1. WARFARIN [Suspect]
     Active Substance: WARFARIN
     Route: 048
     Dates: start: 20160309, end: 20160311
  2. NAPROXEN. [Suspect]
     Active Substance: NAPROXEN
     Route: 048
     Dates: start: 20150917, end: 20160303

REACTIONS (7)
  - Gastric ulcer haemorrhage [None]
  - Gastritis [None]
  - International normalised ratio increased [None]
  - Respiratory failure [None]
  - Duodenal ulcer [None]
  - Gastrointestinal ischaemia [None]
  - Anaemia [None]

NARRATIVE: CASE EVENT DATE: 20160312
